FAERS Safety Report 24075809 (Version 1)
Quarter: 2024Q3

REPORT INFORMATION
  Report Type: Spontaneous
  Country: FI (occurrence: FI)
  Receive Date: 20240710
  Receipt Date: 20240710
  Transmission Date: 20241016
  Serious: Yes (Other)
  Sender: PFIZER
  Company Number: None

PATIENT
  Age: 60 Year
  Sex: Female

DRUGS (3)
  1. CLINDAMYCIN PHOSPHATE [Suspect]
     Active Substance: CLINDAMYCIN PHOSPHATE
     Indication: Atrophic vulvovaginitis
     Dosage: 1 DOSE/DAY (IN THE EVENINGS)
     Route: 067
     Dates: start: 20240610, end: 20240616
  2. VAGIFEM [Suspect]
     Active Substance: ESTRADIOL
     Indication: Atrophic vulvovaginitis
     Dosage: 10 UG, 1X/DAY
     Route: 067
     Dates: start: 20240613, end: 20240626
  3. VAGIFEM [Suspect]
     Active Substance: ESTRADIOL
     Indication: Abdominal pain lower

REACTIONS (4)
  - Haemorrhagic hepatic cyst [Recovered/Resolved with Sequelae]
  - Hepatic cyst [Recovered/Resolved with Sequelae]
  - Abdominal pain upper [Recovered/Resolved with Sequelae]
  - Off label use [Unknown]

NARRATIVE: CASE EVENT DATE: 20240610
